FAERS Safety Report 14396333 (Version 1)
Quarter: 2018Q1

REPORT INFORMATION
  Report Type: Spontaneous
  Country: ES (occurrence: ES)
  Receive Date: 20180116
  Receipt Date: 20180116
  Transmission Date: 20180509
  Serious: Yes (Life-Threatening)
  Sender: FDA-Public Use
  Company Number: ES-009507513-1801ESP002782

PATIENT
  Age: 67 Year
  Sex: Male
  Weight: 109 kg

DRUGS (9)
  1. TOUJEO [Concomitant]
     Active Substance: INSULIN GLARGINE
     Dosage: 35 IU, QD
     Route: 058
  2. ATENOLOL. [Concomitant]
     Active Substance: ATENOLOL
     Dosage: 50 MG, QD
     Route: 048
  3. ADIRO [Concomitant]
     Active Substance: ASPIRIN
     Dosage: 100 MG, QD
     Route: 048
  4. JANUMET [Suspect]
     Active Substance: METFORMIN HYDROCHLORIDE\SITAGLIPTIN PHOSPHATE
     Dosage: 2 DF, QD
     Route: 048
     Dates: start: 2017, end: 20171211
  5. OMEPRAZOL SANDOZ [Concomitant]
     Dosage: 20 MG, QD
     Route: 048
  6. RAMIPRIL SANDOZ [Concomitant]
     Active Substance: RAMIPRIL
     Dosage: 2.5 MG, QD
     Route: 048
  7. SINTROM [Concomitant]
     Active Substance: ACENOCOUMAROL
     Dosage: SPL
     Route: 048
  8. ALIPZA [Concomitant]
     Active Substance: PITAVASTATIN
     Dosage: 2 MG, QD
     Route: 048
  9. AMLODIPINO SANDOZ (AMLODIPINE BESYLATE) [Concomitant]
     Dosage: 10 MG, QD
     Route: 048

REACTIONS (4)
  - Acute kidney injury [Recovering/Resolving]
  - Hyperkalaemia [Recovering/Resolving]
  - Septic shock [Recovered/Resolved]
  - Metabolic acidosis [Recovered/Resolved]

NARRATIVE: CASE EVENT DATE: 20171211
